FAERS Safety Report 5508985-7 (Version None)
Quarter: 2007Q4

REPORT INFORMATION
  Report Type: 
  Country: None (occurrence: None)
  Receive Date: 20071031
  Receipt Date: 20070822
  Transmission Date: 20080405
  Serious: No
  Sender: FDA-Public Use
  Company Number: 2007PV033340

PATIENT
  Age: 51 Year
  Sex: Male

DRUGS (3)
  1. SYMLIN [Suspect]
     Indication: TYPE 2 DIABETES MELLITUS
     Dosage: 120 MCG;TID;SC   60 MCG;BID;SC   10 MCG;SC
     Route: 058
     Dates: start: 20070820, end: 20070820
  2. SYMLIN [Suspect]
     Indication: TYPE 2 DIABETES MELLITUS
     Dosage: 120 MCG;TID;SC   60 MCG;BID;SC   10 MCG;SC
     Route: 058
     Dates: start: 20070820, end: 20070822
  3. SYMLIN [Suspect]
     Indication: TYPE 2 DIABETES MELLITUS
     Dosage: 120 MCG;TID;SC   60 MCG;BID;SC   10 MCG;SC
     Route: 058
     Dates: start: 20070822

REACTIONS (2)
  - BLOOD GLUCOSE INCREASED [None]
  - DRUG INEFFECTIVE [None]
